FAERS Safety Report 21935118 (Version 1)
Quarter: 2023Q1

REPORT INFORMATION
  Report Type: Spontaneous
  Country: BD (occurrence: None)
  Receive Date: 20230201
  Receipt Date: 20230201
  Transmission Date: 20230417
  Serious: Yes (Other)
  Sender: FDA-Public Use
  Company Number: BD-ROCHE-3274009

PATIENT
  Age: 63 Year
  Sex: Female

DRUGS (17)
  1. BEVACIZUMAB [Suspect]
     Active Substance: BEVACIZUMAB
     Indication: Cervix carcinoma
     Route: 065
     Dates: start: 20220227, end: 20220403
  2. DOCETAXEL [Concomitant]
     Active Substance: DOCETAXEL
     Indication: Cervix carcinoma
     Dosage: D1-3
     Route: 065
     Dates: start: 20221105, end: 20221107
  3. CISPLATIN [Concomitant]
     Active Substance: CISPLATIN
     Indication: Cervix carcinoma
     Dosage: D1-3
     Route: 065
     Dates: start: 20221105, end: 20221107
  4. CEFUROXIME [Concomitant]
     Active Substance: CEFUROXIME
     Route: 048
  5. PANTOPRAZOLE [Concomitant]
     Active Substance: PANTOPRAZOLE
     Dosage: 40
     Route: 048
  6. ACETAMINOPHEN [Concomitant]
     Active Substance: ACETAMINOPHEN
     Dosage: 650
     Route: 048
  7. LEVOTHYROXINE [Concomitant]
     Active Substance: LEVOTHYROXINE
     Dosage: 50 MCQ
     Route: 048
  8. CREMAFFIN [Concomitant]
     Indication: Constipation
     Route: 048
  9. METFORMIN [Concomitant]
     Active Substance: METFORMIN HYDROCHLORIDE
     Dosage: 500
     Route: 048
  10. PEGFILGRASTIM [Concomitant]
     Active Substance: PEGFILGRASTIM
     Dosage: 6MG/0.6ML
     Route: 058
     Dates: start: 20221018
  11. DOMPERIDONE [Concomitant]
     Active Substance: DOMPERIDONE
     Route: 048
  12. GRANISETRON HYDROCHLORIDE [Concomitant]
     Active Substance: GRANISETRON HYDROCHLORIDE
     Route: 048
  13. ESOMEPRAZOLE [Concomitant]
     Active Substance: ESOMEPRAZOLE
     Route: 048
  14. NYSTATIN [Concomitant]
     Active Substance: NYSTATIN
     Route: 061
  15. BENZYDAMINE HYDROCHLORIDE [Concomitant]
     Active Substance: BENZYDAMINE HYDROCHLORIDE
     Route: 065
  16. PREGABALIN [Concomitant]
     Active Substance: PREGABALIN
     Route: 048
  17. CLONAZEPAM [Concomitant]
     Active Substance: CLONAZEPAM
     Route: 048

REACTIONS (1)
  - Disease progression [Unknown]
